FAERS Safety Report 6872294-4 (Version None)
Quarter: 2010Q3

REPORT INFORMATION
  Report Type: 
  Country: None (occurrence: None)
  Receive Date: 20100723
  Receipt Date: 20100713
  Transmission Date: 20110219
  Serious: Yes (Hospitalization)
  Sender: FDA-Public Use
  Company Number: NL-ABBOTT-10P-114-0656696-00

PATIENT
  Age: 48 Year
  Sex: Female

DRUGS (6)
  1. CYCLOSPORINE [Suspect]
     Indication: APLASTIC ANAEMIA
  2. CYCLOSPORINE [Suspect]
  3. PREDNISONE [Concomitant]
     Indication: APLASTIC ANAEMIA
  4. CIPROFLOXACIN HCL [Concomitant]
     Indication: PRODUCT USED FOR UNKNOWN INDICATION
  5. FLUCONAZOLE [Concomitant]
     Indication: PRODUCT USED FOR UNKNOWN INDICATION
  6. ANTITHYMOCYTE IMMUNOGLOBULIN [Concomitant]
     Indication: APLASTIC ANAEMIA
     Route: 042

REACTIONS (2)
  - NEUROTOXICITY [None]
  - VASOSPASM [None]
